FAERS Safety Report 7346899-0 (Version None)
Quarter: 2011Q1

REPORT INFORMATION
  Report Type: 
  Country: None (occurrence: None)
  Receive Date: 20110311
  Receipt Date: 20110303
  Transmission Date: 20110831
  Serious: Yes (Hospitalization)
  Sender: FDA-Public Use
  Company Number: FR-JNJFOC-20100109312

PATIENT
  Sex: Male
  Weight: 51 kg

DRUGS (19)
  1. OMEPRAZOLE [Concomitant]
     Indication: ABDOMINAL PAIN
     Route: 065
  2. PARACETAMOL [Concomitant]
     Route: 065
  3. ACTIFED [Concomitant]
     Indication: RHINITIS ALLERGIC
     Route: 065
  4. GARDENAL [Concomitant]
     Indication: EPILEPSY
     Route: 065
  5. PARACETAMOL [Concomitant]
     Route: 065
  6. PARACETAMOL [Concomitant]
     Indication: PAIN
     Route: 065
  7. PROPOFAN [Concomitant]
     Indication: PAIN
     Route: 065
  8. XANAX [Suspect]
     Indication: DEPRESSION
     Route: 065
  9. NEURONTIN [Concomitant]
     Indication: HEADACHE
     Route: 065
  10. PARACETAMOL [Concomitant]
     Indication: HEADACHE
     Route: 065
  11. EFFEXOR [Concomitant]
     Indication: DEPRESSION
     Route: 065
  12. ACETAMINOPHEN AND TRAMADOL HCL [Concomitant]
     Indication: HEADACHE
     Route: 065
  13. STILNOX [Concomitant]
     Indication: SLEEP DISORDER THERAPY
     Route: 065
  14. OXYNORM [Suspect]
     Indication: PAIN
     Route: 065
  15. CLARITIN [Concomitant]
     Indication: SEASONAL ALLERGY
     Route: 065
  16. TRAMADOL HCL [Suspect]
     Indication: HEADACHE
     Route: 065
  17. TOPALGIC [Suspect]
     Indication: PAIN
     Route: 065
  18. NEXAVAR [Suspect]
     Indication: HEPATIC NEOPLASM MALIGNANT
     Route: 048
  19. EQUANIL [Concomitant]
     Indication: DEPRESSION
     Route: 065

REACTIONS (2)
  - CONFUSIONAL STATE [None]
  - MALNUTRITION [None]
